FAERS Safety Report 15226867 (Version 1)
Quarter: 2018Q3

REPORT INFORMATION
  Report Type: Spontaneous
  Country: US (occurrence: US)
  Receive Date: 20180801
  Receipt Date: 20180801
  Transmission Date: 20181010
  Serious: Yes (Other)
  Sender: FDA-Public Use
  Company Number: PHHY2018US054125

PATIENT
  Age: 39 Year
  Sex: Female

DRUGS (1)
  1. HYDROCHLOROTHIAZIDE SANDOZ [Suspect]
     Active Substance: HYDROCHLOROTHIAZIDE
     Indication: HYPERTENSION
     Route: 065

REACTIONS (5)
  - Maternal exposure during pregnancy [Unknown]
  - Blood pressure abnormal [Unknown]
  - Premature delivery [Unknown]
  - Pre-eclampsia [Unknown]
  - Headache [Unknown]
